FAERS Safety Report 8773688 (Version 1)
Quarter: 2012Q4

REPORT INFORMATION
  Report Type: 
  Country: FI (occurrence: FI)
  Receive Date: 20120907
  Receipt Date: 20120907
  Transmission Date: 20130627
  Serious: Yes (Hospitalization)
  Sender: FDA-Public Use
  Company Number: FI-ROCHE-1115597

PATIENT
  Age: 71 Year
  Sex: Male

DRUGS (4)
  1. XELODA [Suspect]
     Indication: COLON CANCER
     Dosage: Last dose prior to SAE 09/Jul/2012
     Route: 048
     Dates: start: 20120416, end: 20120715
  2. EXFORGE HCT [Concomitant]
     Indication: HYPERTENSION
     Dosage: Dose reported as 10mg/160mg/12.5mg daily
     Route: 048
  3. SOMAC (FINLAND) [Concomitant]
     Route: 048
  4. PRIMASPAN [Concomitant]
     Route: 048

REACTIONS (1)
  - Cerebral infarction [Recovered/Resolved]
